FAERS Safety Report 4969719-8 (Version None)
Quarter: 2006Q2

REPORT INFORMATION
  Report Type: 
  Country: None (occurrence: None)
  Receive Date: 20060411
  Receipt Date: 20060126
  Transmission Date: 20061013
  Serious: Yes (Other)
  Sender: FDA-Public Use
  Company Number: GB-MERCK-0601GBR00144

PATIENT
  Age: 69 Year
  Sex: Male
  Weight: 95 kg

DRUGS (8)
  1. SINGULAIR [Suspect]
     Indication: ASTHMA
     Route: 048
     Dates: start: 20051003, end: 20060123
  2. ALBUTEROL [Concomitant]
     Route: 065
     Dates: start: 20000321
  3. SALMETEROL XINAFOATE [Concomitant]
     Route: 065
     Dates: start: 20020501
  4. CETIRIZINE HYDROCHLORIDE [Concomitant]
     Route: 065
     Dates: start: 20020905
  5. FLUTICASONE PROPIONATE [Concomitant]
     Route: 065
     Dates: start: 20030310
  6. BECLOMETHASONE DIPROPIONATE [Concomitant]
     Route: 065
     Dates: start: 20051031
  7. QUININE SULFATE [Concomitant]
     Route: 065
     Dates: start: 20051031
  8. OXYTETRACYCLINE [Concomitant]
     Route: 065
     Dates: end: 20051219

REACTIONS (2)
  - BLOOD CREATINE PHOSPHOKINASE INCREASED [None]
  - MYOSITIS [None]
